FAERS Safety Report 11307300 (Version 3)
Quarter: 2015Q4

REPORT INFORMATION
  Report Type: Spontaneous
  Country: US (occurrence: US)
  Receive Date: 20150723
  Receipt Date: 20151030
  Transmission Date: 20160304
  Serious: Yes (Hospitalization)
  Sender: FDA-Public Use
  Company Number: US-DSJP-DSU-2015-122797

PATIENT

DRUGS (5)
  1. ALEVE [Suspect]
     Active Substance: NAPROXEN SODIUM
     Indication: PRODUCT USED FOR UNKNOWN INDICATION
  2. ASPIRIN                            /00002701/ [Suspect]
     Active Substance: ASPIRIN
     Indication: PRODUCT USED FOR UNKNOWN INDICATION
  3. BENICAR HCT [Suspect]
     Active Substance: HYDROCHLOROTHIAZIDE\OLMESARTAN MEDOXOMIL
     Indication: HYPERTENSION
     Dosage: UNK
  4. BENICAR [Suspect]
     Active Substance: OLMESARTAN MEDOXOMIL
     Indication: HYPERTENSION
     Dosage: UNK UNK, QD
     Dates: start: 201209, end: 20121125
  5. PROTONIX [Concomitant]
     Active Substance: PANTOPRAZOLE SODIUM
     Dosage: UNK
     Dates: start: 2015

REACTIONS (14)
  - Hypotension [Unknown]
  - Constipation [Unknown]
  - Gastritis [Unknown]
  - Dyspepsia [Not Recovered/Not Resolved]
  - Hepatic enzyme increased [Unknown]
  - Hiatus hernia [Unknown]
  - Malabsorption [Unknown]
  - Diverticulitis [Unknown]
  - Impaired gastric emptying [Unknown]
  - Bowel movement irregularity [Not Recovered/Not Resolved]
  - Reactive gastropathy [Unknown]
  - Gastrooesophageal reflux disease [Unknown]
  - Renal failure [Recovered/Resolved]
  - Polyp [Unknown]

NARRATIVE: CASE EVENT DATE: 201012
